FAERS Safety Report 6270481-X (Version None)
Quarter: 2009Q3

REPORT INFORMATION
  Report Type: 
  Country: None (occurrence: None)
  Receive Date: 20090716
  Receipt Date: 20090710
  Transmission Date: 20100115
  Serious: No
  Sender: FDA-Public Use
  Company Number: US-JNJFOC-20090703842

PATIENT
  Sex: Female
  Weight: 54.43 kg

DRUGS (3)
  1. DURAGESIC-100 [Suspect]
     Indication: ARTHRITIS
     Route: 062
  2. ANTIHYPERTENSIVE [Concomitant]
     Indication: BLOOD PRESSURE
     Route: 048
  3. THYROID TAB [Concomitant]
     Indication: THYROID DISORDER
     Route: 048

REACTIONS (1)
  - WRONG TECHNIQUE IN DRUG USAGE PROCESS [None]
